FAERS Safety Report 7560678 (Version 2)
Quarter: 2013Q3

REPORT INFORMATION
  Report Type: Report from Study
  Country: US (occurrence: US)
  Receive Date: 20100828
  Receipt Date: 20130730
  Transmission Date: 20140515
  Serious: No
  Sender: FDA-Public Use
  Company Number: US-ABBOTT-10P-163-0617822-00

PATIENT
  Age: 61 Year
  Sex: Male
  Weight: 93.98 kg

DRUGS (8)
  1. NIASPAN (COATED) [Suspect]
     Indication: HIGH DENSITY LIPOPROTEIN DECREASED
     Dosage: DAILY AT HOUR OF SLEEP
     Route: 048
     Dates: start: 200110
  2. NIASPAN (COATED) [Suspect]
     Indication: LOW DENSITY LIPOPROTEIN INCREASED
  3. BIG RED FISH OIL [Concomitant]
     Indication: HIGH DENSITY LIPOPROTEIN DECREASED
     Dosage: DAILY
     Route: 048
     Dates: start: 200909
  4. DIOVAN [Concomitant]
     Indication: HYPERTENSION
  5. TOPROL [Concomitant]
     Indication: HYPERTENSION
  6. ASPIRIN [Concomitant]
     Indication: PRODUCT USED FOR UNKNOWN INDICATION
     Route: 048
  7. HUMALOG [Concomitant]
     Indication: PRODUCT USED FOR UNKNOWN INDICATION
  8. CRESTOR [Concomitant]
     Indication: PRODUCT USED FOR UNKNOWN INDICATION

REACTIONS (3)
  - Flushing [Unknown]
  - Middle insomnia [Not Recovered/Not Resolved]
  - Flushing [Recovered/Resolved]
